FAERS Safety Report 7596474-8 (Version None)
Quarter: 2011Q3

REPORT INFORMATION
  Report Type: 
  Country: None (occurrence: None)
  Receive Date: 20110708
  Receipt Date: 20110630
  Transmission Date: 20111222
  Serious: Yes (Hospitalization)
  Sender: FDA-Public Use
  Company Number: US-BIOGENIDEC-2011BI020074

PATIENT
  Age: 59 Year
  Sex: Male

DRUGS (9)
  1. AVONEX [Suspect]
     Indication: MULTIPLE SCLEROSIS
     Route: 030
     Dates: start: 20090101
  2. TOPAMAX [Concomitant]
     Indication: TREMOR
     Dates: start: 20070101
  3. SIMVASTATIN [Concomitant]
     Indication: BLOOD CHOLESTEROL INCREASED
     Dates: start: 19990101
  4. LANTUS [Concomitant]
     Indication: DIABETES MELLITUS
     Dates: start: 19990101
  5. PRIMIDONE [Concomitant]
     Indication: MULTIPLE SCLEROSIS
     Dates: start: 20070101
  6. GABAPENTIN [Concomitant]
     Indication: HYPOAESTHESIA
     Dates: start: 20070101
  7. GLIMEPIRIDE [Concomitant]
     Indication: DIABETES MELLITUS
     Dates: start: 19990101
  8. METFORMIN HCL [Concomitant]
     Indication: DIABETES MELLITUS
     Dates: start: 19990101
  9. LEXAPRO [Concomitant]

REACTIONS (2)
  - INJECTION SITE PAIN [None]
  - ARTHROPATHY [None]
